FAERS Safety Report 8469717-6 (Version None)
Quarter: 2012Q2

REPORT INFORMATION
  Report Type: 
  Country: None (occurrence: None)
  Receive Date: 20120626
  Receipt Date: 20120621
  Transmission Date: 20120825
  Serious: No
  Sender: FDA-Public Use
  Company Number: US-PFIZER INC-2012150272

PATIENT
  Sex: Female
  Weight: 86.168 kg

DRUGS (2)
  1. ADVIL CONGESTION RELIEF [Suspect]
     Indication: SINUS CONGESTION
     Dosage: 1 DF, DAILY
     Route: 048
     Dates: start: 20110101
  2. MELOXICAM [Concomitant]
     Indication: OSTEOARTHRITIS
     Dosage: 15 MG, DAILY

REACTIONS (2)
  - WEIGHT DECREASED [None]
  - DRUG INEFFECTIVE [None]
